FAERS Safety Report 11143370 (Version 3)
Quarter: 2016Q1

REPORT INFORMATION
  Report Type: Report from Study
  Country: US (occurrence: US)
  Receive Date: 20150528
  Receipt Date: 20160225
  Transmission Date: 20160525
  Serious: Yes (Other)
  Sender: FDA-Public Use
  Company Number: US-ROCHE-1581012

PATIENT

DRUGS (1)
  1. BEVACIZUMAB [Suspect]
     Active Substance: BEVACIZUMAB
     Indication: MENINGIOMA
     Route: 042

REACTIONS (14)
  - Anaemia [Unknown]
  - Hypertension [Unknown]
  - Hyponatraemia [Unknown]
  - Wound infection [Unknown]
  - Contusion [Unknown]
  - Embolism [Unknown]
  - Asthenia [Unknown]
  - Ataxia [Unknown]
  - Nausea [Unknown]
  - Vomiting [Unknown]
  - Pancreatitis [Unknown]
  - Lipase increased [Unknown]
  - Proteinuria [Unknown]
  - Fatigue [Unknown]
